FAERS Safety Report 17261551 (Version 1)
Quarter: 2020Q1

REPORT INFORMATION
  Report Type: Spontaneous
  Country: NL (occurrence: NL)
  Receive Date: 20200113
  Receipt Date: 20200113
  Transmission Date: 20200409
  Serious: Yes (Other)
  Sender: FDA-Public Use
  Company Number: NL-TEVA-2020-NL-1166852

PATIENT
  Sex: Female
  Weight: 70 kg

DRUGS (7)
  1. PRETNISOLON (PREDNISOLONE) [Suspect]
     Active Substance: PREDNISOLONE
     Indication: IMMUNOSUPPRESSION
     Dosage: 7 MG  PER DAY
     Dates: start: 20190325
  2. METROPOLOL [Concomitant]
     Active Substance: METOPROLOL
  3. GLICLAZIDE [Concomitant]
     Active Substance: GLICLAZIDE
  4. EZETIMIB [Concomitant]
     Active Substance: EZETIMIBE
  5. TACROLIMUS. [Concomitant]
     Active Substance: TACROLIMUS
  6. APIXABAN [Concomitant]
     Active Substance: APIXABAN
  7. NIFEDIPINE. [Concomitant]
     Active Substance: NIFEDIPINE

REACTIONS (5)
  - Herpes zoster [Recovered/Resolved]
  - Alopecia [Unknown]
  - Thrombosis [Unknown]
  - Neuralgia [Unknown]
  - Varicella [Unknown]
